FAERS Safety Report 6022468-X (Version None)
Quarter: 2008Q4

REPORT INFORMATION
  Report Type: 
  Country: None (occurrence: None)
  Receive Date: 20081221
  Receipt Date: 20081221
  Transmission Date: 20090506
  Serious: No
  Sender: FDA-Public Use
  Company Number: None

PATIENT
  Age: 73 Year
  Sex: Female
  Weight: 63.9572 kg

DRUGS (1)
  1. FOSAMAX [Suspect]
     Indication: OSTEOPOROSIS
     Dosage: ONCE A WEEK
     Dates: start: 20040525, end: 20081115

REACTIONS (5)
  - BONE PAIN [None]
  - COMPRESSION FRACTURE [None]
  - DYSPEPSIA [None]
  - PALPITATIONS [None]
  - SLEEP DISORDER DUE TO GENERAL MEDICAL CONDITION, INSOMNIA TYPE [None]
